FAERS Safety Report 8212050-8 (Version None)
Quarter: 2012Q1

REPORT INFORMATION
  Report Type: 
  Country: None (occurrence: None)
  Receive Date: 20120315
  Receipt Date: 20120306
  Transmission Date: 20120608
  Serious: Yes (Other)
  Sender: FDA-Public Use
  Company Number: PHHY2012DE020060

PATIENT
  Age: 35 Year
  Sex: Male

DRUGS (3)
  1. METOPROLOL SUCCINATE [Concomitant]
     Indication: HYPERTENSION
  2. DELMUNO [Concomitant]
     Indication: HYPERTENSION
  3. RASILEZ [Suspect]
     Indication: HYPERTENSION

REACTIONS (2)
  - GLOMERULONEPHRITIS [None]
  - BLOOD POTASSIUM INCREASED [None]
